FAERS Safety Report 8791606 (Version 1)
Quarter: 2012Q4

REPORT INFORMATION
  Report Type: 
  Country: JP (occurrence: JP)
  Receive Date: 20120918
  Receipt Date: 20120918
  Transmission Date: 20130627
  Serious: Yes (Death, Other)
  Sender: FDA-Public Use
  Company Number: JP-PFIZER INC-2012223087

PATIENT

DRUGS (2)
  1. DIFLUCAN [Suspect]
     Route: 048
  2. WARFARIN [Interacting]

REACTIONS (2)
  - Drug interaction [Fatal]
  - Haemorrhage [Fatal]
